FAERS Safety Report 17017864 (Version 5)
Quarter: 2020Q2

REPORT INFORMATION
  Report Type: Spontaneous
  Country: US (occurrence: US)
  Receive Date: 20191111
  Receipt Date: 20200510
  Transmission Date: 20200713
  Serious: Yes (Congenital Anomaly, Other)
  Sender: FDA-Public Use
  Company Number: NVSC2019US028549

PATIENT
  Sex: Male

DRUGS (1)
  1. ZOFRAN [Suspect]
     Active Substance: ONDANSETRON HYDROCHLORIDE
     Indication: FOETAL EXPOSURE DURING PREGNANCY
     Route: 064

REACTIONS (59)
  - Pulmonary hypoplasia [Unknown]
  - Cryptorchism [Unknown]
  - Left-to-right cardiac shunt [Unknown]
  - Foetal exposure during pregnancy [Unknown]
  - Injury [Unknown]
  - Nasal congestion [Unknown]
  - Upper respiratory tract infection [Unknown]
  - Limb injury [Unknown]
  - Contusion [Unknown]
  - Fall [Unknown]
  - Skin laceration [Unknown]
  - Low birth weight baby [Unknown]
  - Anhedonia [Unknown]
  - Attention deficit hyperactivity disorder [Unknown]
  - Vomiting [Unknown]
  - Epistaxis [Unknown]
  - Growth disorder [Unknown]
  - Anxiety [Unknown]
  - Syndactyly [Unknown]
  - Pulmonary artery aneurysm [Unknown]
  - Otitis media chronic [Unknown]
  - Foetal malnutrition [Unknown]
  - Pain [Unknown]
  - Atrial septal defect [Unknown]
  - Heart disease congenital [Unknown]
  - Congenital arterial malformation [Unknown]
  - Cardiac murmur [Unknown]
  - Ear infection [Unknown]
  - Gastritis [Unknown]
  - Night sweats [Unknown]
  - Pharyngitis [Unknown]
  - Failure to thrive [Unknown]
  - Deformity [Unknown]
  - Gastrooesophageal reflux disease [Unknown]
  - Body tinea [Unknown]
  - Metabolic disorder [Unknown]
  - Pyrexia [Unknown]
  - Headache [Unknown]
  - Arterial injury [Unknown]
  - Developmental coordination disorder [Unknown]
  - Pulmonary valve incompetence [Unknown]
  - Jaundice neonatal [Unknown]
  - Right atrial enlargement [Unknown]
  - Congenital anomaly [Unknown]
  - Hypospadias [Unknown]
  - Emotional distress [Unknown]
  - Constipation [Unknown]
  - Short stature [Unknown]
  - Endocrine disorder [Unknown]
  - Cough [Unknown]
  - Selective eating disorder [Unknown]
  - Bronchitis [Unknown]
  - Pulmonary artery stenosis congenital [Unknown]
  - Hypothyroidism [Unknown]
  - Hypoglycaemia neonatal [Unknown]
  - Pneumonia [Unknown]
  - Feeding disorder [Unknown]
  - Dysphagia [Unknown]
  - Head injury [Unknown]
